FAERS Safety Report 17938412 (Version 3)
Quarter: 2020Q3

REPORT INFORMATION
  Report Type: Spontaneous
  Country: US (occurrence: US)
  Receive Date: 20200624
  Receipt Date: 20200706
  Transmission Date: 20201103
  Serious: Yes (Other)
  Sender: FDA-Public Use
  Company Number: US-BAYER-2020-124385

PATIENT
  Sex: Male

DRUGS (1)
  1. VITRAKVI [Suspect]
     Active Substance: LAROTRECTINIB
     Indication: MENINGIOMA MALIGNANT
     Dosage: UNK
     Dates: start: 202003

REACTIONS (5)
  - Meningioma malignant [None]
  - Malaise [None]
  - Cardiomyopathy [None]
  - Intentional product misuse [None]
  - Fluid retention [None]

NARRATIVE: CASE EVENT DATE: 20200508
